FAERS Safety Report 16719724 (Version 2)
Quarter: 2019Q4

REPORT INFORMATION
  Report Type: Spontaneous
  Country: US (occurrence: US)
  Receive Date: 20190820
  Receipt Date: 20191003
  Transmission Date: 20200122
  Serious: No
  Sender: FDA-Public Use
  Company Number: US-PFIZER INC-2019352411

PATIENT
  Age: 57 Year
  Sex: Female
  Weight: 48.73 kg

DRUGS (1)
  1. CHANTIX [Suspect]
     Active Substance: VARENICLINE TARTRATE
     Indication: EX-TOBACCO USER
     Dosage: 0.5 MG, DAILY
     Dates: start: 201907, end: 201908

REACTIONS (4)
  - Tobacco user [Recovered/Resolved]
  - Drug ineffective [Recovered/Resolved]
  - Product dispensing error [Recovered/Resolved]
  - Intentional product misuse [Recovered/Resolved]

NARRATIVE: CASE EVENT DATE: 201907
